FAERS Safety Report 9113145 (Version 1)
Quarter: 2013Q1

REPORT INFORMATION
  Report Type: Spontaneous
  Country: FR (occurrence: FR)
  Receive Date: 20130211
  Receipt Date: 20130211
  Transmission Date: 20140127
  Serious: Yes (Other)
  Sender: FDA-Public Use
  Company Number: FR-TEVA-382118ISR

PATIENT
  Sex: Female

DRUGS (3)
  1. CEFTRIAXONE [Suspect]
     Indication: LYME DISEASE
     Dosage: 2 DOSAGE FORMS DAILY; SUBCUTANEOUS AND INTRAMUSCULAR INJECTIONS - 10 DAYS OF TREATMENT
     Route: 030
     Dates: start: 20130103, end: 20130115
  2. CEFTRIAXONE [Suspect]
     Dosage: 2 DOSAGE FORMS DAILY; SUBCUTANEOUS AND INTRAMUSCULAR INJECTIONS - 10 DAYS OF TREATMENT
     Route: 058
     Dates: start: 20130103, end: 20130115
  3. LEVOTHYROX [Concomitant]
     Dosage: FOR SEVERAL YEARS

REACTIONS (4)
  - Injection site nodule [Recovering/Resolving]
  - Rash pruritic [Recovering/Resolving]
  - Reaction to drug excipients [Unknown]
  - Drug hypersensitivity [Unknown]
